FAERS Safety Report 21688360 (Version 1)
Quarter: 2022Q4

REPORT INFORMATION
  Report Type: Spontaneous
  Country: GB (occurrence: GB)
  Receive Date: 20221206
  Receipt Date: 20221206
  Transmission Date: 20230113
  Serious: Yes (Death)
  Sender: FDA-Public Use
  Company Number: GB-MLMSERVICE-20221130-3943451-4

PATIENT
  Age: 42 Year
  Sex: Male

DRUGS (12)
  1. MIRTAZAPINE [Suspect]
     Active Substance: MIRTAZAPINE
     Dosage: UNK
     Route: 048
  2. BENZOYLECGONINE [Suspect]
     Active Substance: BENZOYLECGONINE
     Dosage: UNK
  3. NITRAZEPAM [Suspect]
     Active Substance: NITRAZEPAM
     Dosage: UNK
  4. ALPRAZOLAM [Suspect]
     Active Substance: ALPRAZOLAM
     Dosage: UNK
  5. DIAZEPAM [Suspect]
     Active Substance: DIAZEPAM
     Dosage: UNK
  6. NORDAZEPAM [Suspect]
     Active Substance: NORDAZEPAM
     Dosage: UNK
  7. MORPHINE [Suspect]
     Active Substance: MORPHINE
     Dosage: UNK
  8. CODEINE [Suspect]
     Active Substance: CODEINE
     Dosage: UNK
  9. CLONAZEPAM [Suspect]
     Active Substance: CLONAZEPAM
     Dosage: UNK
  10. PREGABALIN [Suspect]
     Active Substance: PREGABALIN
     Dosage: UNK
  11. BUPRENORPHINE [Suspect]
     Active Substance: BUPRENORPHINE
     Dosage: UNK
  12. COCAINE [Suspect]
     Active Substance: COCAINE
     Dosage: UNK

REACTIONS (1)
  - Toxicity to various agents [Fatal]
